FAERS Safety Report 11108800 (Version 1)
Quarter: 2015Q2

REPORT INFORMATION
  Report Type: Spontaneous
  Country: US (occurrence: None)
  Receive Date: 20150511
  Receipt Date: 20150511
  Transmission Date: 20150821
  Serious: Yes (Life-Threatening, Hospitalization, Other)
  Sender: FDA-Public Use
  Company Number: None

PATIENT
  Age: 12 Year
  Sex: Male
  Weight: 54.43 kg

DRUGS (7)
  1. BUPROPION HCL SR [Suspect]
     Active Substance: BUPROPION HYDROCHLORIDE
     Indication: ATTENTION DEFICIT/HYPERACTIVITY DISORDER
     Route: 048
     Dates: start: 20150221, end: 20150504
  2. BUPROPION HCL SR [Suspect]
     Active Substance: BUPROPION HYDROCHLORIDE
     Indication: DEPRESSION
     Route: 048
     Dates: start: 20150221, end: 20150504
  3. GUANFACINE. [Concomitant]
     Active Substance: GUANFACINE
  4. SINGULAIR [Concomitant]
     Active Substance: MONTELUKAST SODIUM
  5. SERTRALINE [Concomitant]
     Active Substance: SERTRALINE HYDROCHLORIDE
  6. RISPERDAL [Concomitant]
     Active Substance: RISPERIDONE
  7. CLONIDINE. [Concomitant]
     Active Substance: CLONIDINE

REACTIONS (10)
  - Hypertension [None]
  - Drug prescribing error [None]
  - Fall [None]
  - Therapy cessation [None]
  - Laceration [None]
  - Lower limb fracture [None]
  - Suicide attempt [None]
  - Headache [None]
  - Insomnia [None]
  - Agitation [None]

NARRATIVE: CASE EVENT DATE: 20150504
